FAERS Safety Report 8779053 (Version 1)
Quarter: 2012Q4

REPORT INFORMATION
  Report Type: 
  Country: FR (occurrence: FR)
  Receive Date: 20120912
  Receipt Date: 20120912
  Transmission Date: 20130627
  Serious: Yes (Other)
  Sender: FDA-Public Use
  Company Number: FR-UCBSA-043678

PATIENT
  Sex: Female

DRUGS (2)
  1. VIMPAT [Suspect]
     Indication: PARTIAL SEIZURES
     Route: 048
  2. KEPPRA [Concomitant]
     Indication: PARTIAL SEIZURES
     Dosage: DAILY DOSE: 3000 MG
     Route: 048

REACTIONS (1)
  - Myasthenia gravis [Recovered/Resolved]
